FAERS Safety Report 8948227 (Version 1)
Quarter: 2012Q4

REPORT INFORMATION
  Report Type: Spontaneous
  Country: US (occurrence: None)
  Receive Date: 20121126
  Receipt Date: 20121126
  Transmission Date: 20130627
  Serious: Yes (Death)
  Sender: FDA-Public Use
  Company Number: 2012-603

PATIENT
  Age: 62 Year
  Sex: Male

DRUGS (11)
  1. FAZACLO [Suspect]
     Indication: PARANOID SCHIZOPHRENIA
     Route: 048
     Dates: start: 20120618, end: 2012
  2. ZANTAC (RANITIDINE HYDROCHLORIDE) [Concomitant]
  3. DESYREL (TRAZODONE HYDROCHLORIDE) [Concomitant]
  4. ADVAIR HFA (FLUTICASONE PROPIONATE, SALMETEROL XINAFOATE) [Concomitant]
  5. VITAMIN E DL-ALPHA (TOCOPHERYL ACETATE) [Concomitant]
  6. LASIX (FUROSEMIDE) [Concomitant]
  7. POTASSIUM CHLORIDE (POTASSIUM CHLORIDE) [Concomitant]
  8. VENTOLIN (SALBUTAMOL SULFATE) [Concomitant]
  9. METOPROLOL TARTRATE (METOPROLOL TARTRATE) [Concomitant]
  10. LISINOPRIL (LISINOPRIL) [Concomitant]
  11. OXYGEN (OXYGEN) [Concomitant]

REACTIONS (1)
  - Cardiac failure congestive [None]
